FAERS Safety Report 10551863 (Version 1)
Quarter: 2014Q4

REPORT INFORMATION
  Report Type: Report from Study
  Country: US (occurrence: US)
  Receive Date: 20141029
  Receipt Date: 20141029
  Transmission Date: 20150529
  Serious: Yes (Other)
  Sender: FDA-Public Use
  Company Number: US-BAXTER-2014BAX063892

PATIENT
  Age: 55 Year
  Sex: Female
  Weight: 51.3 kg

DRUGS (2)
  1. GAMMAGARD LIQUID [Suspect]
     Active Substance: HUMAN IMMUNOGLOBULIN G
     Indication: BLOOD IMMUNOGLOBULIN A DECREASED
  2. GAMMAGARD LIQUID [Suspect]
     Active Substance: HUMAN IMMUNOGLOBULIN G
     Indication: BLOOD IMMUNOGLOBULIN G DECREASED
     Route: 058
     Dates: start: 2012

REACTIONS (5)
  - Drug dose omission [Recovered/Resolved]
  - Postoperative adhesion [Not Recovered/Not Resolved]
  - Hernia [Unknown]
  - Wrong device used [Not Recovered/Not Resolved]
  - Suture related complication [Not Recovered/Not Resolved]

NARRATIVE: CASE EVENT DATE: 20140704
